FAERS Safety Report 9205937 (Version 1)
Quarter: 2013Q2

REPORT INFORMATION
  Report Type: Spontaneous
  Country: US (occurrence: US)
  Receive Date: 20130403
  Receipt Date: 20130403
  Transmission Date: 20140414
  Serious: Yes (Hospitalization)
  Sender: FDA-Public Use
  Company Number: US-JNJFOC-20130317530

PATIENT
  Sex: Female
  Weight: 67.59 kg

DRUGS (1)
  1. LEVAQUIN [Suspect]
     Indication: URINARY TRACT INFECTION
     Dosage: FOR 5 DAYS, ABOUT A YEAR AGO
     Route: 048
     Dates: start: 2012, end: 2012

REACTIONS (3)
  - Spinal fracture [Unknown]
  - Tendon disorder [Unknown]
  - Fall [Recovered/Resolved]
